FAERS Safety Report 10432555 (Version 1)
Quarter: 2014Q3

REPORT INFORMATION
  Report Type: Spontaneous
  Country: US (occurrence: None)
  Receive Date: 20140815
  Receipt Date: 20140815
  Transmission Date: 20150326
  Serious: No
  Sender: FDA-Public Use
  Company Number: A-NJ2014-100795

PATIENT
  Age: 79 Year
  Sex: Female

DRUGS (3)
  1. REVATIO (SILDENAFIL CITRATE) [Concomitant]
  2. COUMADIN [Concomitant]
     Active Substance: WARFARIN SODIUM
  3. OPSUMIT [Suspect]
     Active Substance: MACITENTAN
     Indication: PULMONARY ARTERIAL HYPERTENSION
     Route: 048
     Dates: start: 20140527

REACTIONS (2)
  - Blood pressure decreased [None]
  - Heart rate irregular [None]
